FAERS Safety Report 10094213 (Version 1)
Quarter: 2014Q2

REPORT INFORMATION
  Report Type: Spontaneous
  Country: US (occurrence: None)
  Receive Date: 20140421
  Receipt Date: 20140421
  Transmission Date: 20141212
  Serious: Yes (Disabling)
  Sender: FDA-Public Use
  Company Number: None

PATIENT
  Age: 69 Year
  Sex: Female
  Weight: 57.61 kg

DRUGS (3)
  1. ALENDRONATE [Suspect]
     Indication: OSTEOPENIA
     Dosage: 1 PILL ONCE A WEEK TAKEN BY MOUTH
     Route: 048
  2. ALENDRONATE [Suspect]
     Indication: OSTEOPETROSIS
     Dosage: 1 PILL ONCE A WEEK TAKEN BY MOUTH
     Route: 048
  3. ATELVIA [Suspect]

REACTIONS (1)
  - Osteonecrosis of jaw [None]
